FAERS Safety Report 4507838-0 (Version None)
Quarter: 2004Q4

REPORT INFORMATION
  Report Type: 
  Country: None (occurrence: None)
  Receive Date: 20041118
  Receipt Date: 20041104
  Transmission Date: 20050328
  Serious: Yes (Death, Hospitalization)
  Sender: FDA-Public Use
  Company Number: A-CH2004-07751

PATIENT
  Age: 67 Year
  Sex: Female
  Weight: 70 kg

DRUGS (8)
  1. TRACLEER [Suspect]
     Indication: PULMONARY HYPERTENSION
     Dosage: 62.5 MG, BID, ORAL
     Route: 048
     Dates: start: 20030612, end: 20040823
  2. BISOPROLOL FUMARATE [Concomitant]
  3. PANTOPRAZOLE (PANTOPRAZOLE) [Concomitant]
  4. HEPARIN [Concomitant]
  5. LEVOFLOXACIN [Concomitant]
  6. DIPYRONE TAB [Concomitant]
  7. GLUCOSE (GLUCOSE) [Concomitant]
  8. METOCLOPRAMIDE [Concomitant]

REACTIONS (4)
  - INTESTINAL OBSTRUCTION [None]
  - INTRACARDIAC THROMBUS [None]
  - PULMONARY EMBOLISM [None]
  - RIGHT VENTRICULAR FAILURE [None]
